FAERS Safety Report 20316014 (Version 1)
Quarter: 2022Q1

REPORT INFORMATION
  Report Type: Report from Study
  Country: GT (occurrence: GT)
  Receive Date: 20220110
  Receipt Date: 20220110
  Transmission Date: 20220423
  Serious: Yes (Hospitalization)
  Sender: FDA-Public Use
  Company Number: GT-NOVARTISPH-NVSC2022GT002426

PATIENT
  Age: 77 Year
  Sex: Female

DRUGS (1)
  1. SACUBITRIL\VALSARTAN [Suspect]
     Active Substance: SACUBITRIL\VALSARTAN
     Indication: Product used for unknown indication
     Dosage: 50 MG (STARTED APPROXIMATELY 1 YEAR AGO)
     Route: 065

REACTIONS (4)
  - Hypertension [Unknown]
  - Cardiac disorder [Unknown]
  - Cardiomegaly [Unknown]
  - Arrhythmia [Unknown]
